FAERS Safety Report 7219064-5 (Version None)
Quarter: 2011Q1

REPORT INFORMATION
  Report Type: 
  Country: None (occurrence: None)
  Receive Date: 20110111
  Receipt Date: 20081229
  Transmission Date: 20110831
  Serious: No
  Sender: FDA-Public Use
  Company Number: 2008BI035138

PATIENT
  Sex: Female

DRUGS (1)
  1. TYSABRI [Suspect]
     Indication: MULTIPLE SCLEROSIS
     Route: 042
     Dates: start: 20081110

REACTIONS (3)
  - DRUG INEFFECTIVE [None]
  - PAIN IN EXTREMITY [None]
  - GAIT DISTURBANCE [None]
